FAERS Safety Report 14105732 (Version 1)
Quarter: 2017Q4

REPORT INFORMATION
  Report Type: Spontaneous
  Country: CN (occurrence: CN)
  Receive Date: 20171018
  Receipt Date: 20171018
  Transmission Date: 20180321
  Serious: Yes (Other)
  Sender: FDA-Public Use
  Company Number: CN-BAXTER-2017BAX035353

PATIENT
  Age: 72 Year
  Sex: Female
  Weight: 55 kg

DRUGS (22)
  1. 0.9% SODIUM CHLORIDE INJECTION [Suspect]
     Active Substance: SODIUM CHLORIDE
     Dosage: DILUENT FOR BROMHEXINE HYDROCHLORIDE (DOSE RE-INTRODUCED)
     Route: 041
     Dates: end: 20170729
  2. MEDIUM AND LONG CHAIN FAT EMULSION INJECTION (C8-24) [Suspect]
     Active Substance: GLYCERIN\MEDIUM-CHAIN TRIGLYCERIDES\PHOSPHOLIPID\SOYBEAN OIL
     Indication: NUTRITIONAL SUPPLEMENTATION
     Route: 041
     Dates: start: 20170722
  3. MEDIUM AND LONG CHAIN FAT EMULSION INJECTION (C8-24) [Suspect]
     Active Substance: GLYCERIN\MEDIUM-CHAIN TRIGLYCERIDES\PHOSPHOLIPID\SOYBEAN OIL
     Dosage: DOSE RE-INTRODUCED
     Route: 041
     Dates: end: 20170729
  4. ESOMEPRAZOLE SODIUM. [Suspect]
     Active Substance: ESOMEPRAZOLE SODIUM
     Dosage: DOSE RE-INTRODUCED
     Route: 041
     Dates: end: 20170729
  5. 0.9% SODIUM CHLORIDE INJECTION [Suspect]
     Active Substance: SODIUM CHLORIDE
     Dosage: DILUENT FOR EDARAVONE
     Route: 041
     Dates: start: 20170722, end: 20170729
  6. 0.9% SODIUM CHLORIDE INJECTION [Suspect]
     Active Substance: SODIUM CHLORIDE
     Dosage: DILUENT FOR ESOMEPRAZOLE SODIUM (DOSE RE-INTRODUCED)
     Route: 041
     Dates: end: 20170729
  7. FAT-SOLUBLE VITAMIN FOR INJECTION (II) [Suspect]
     Active Substance: VITAMINS
     Indication: NUTRITIONAL SUPPLEMENTATION
     Dosage: 1 BOTTLE
     Route: 041
     Dates: start: 20170722
  8. PIPERACILLIN AND TAZOBACTAM [Suspect]
     Active Substance: PIPERACILLIN SODIUM\TAZOBACTAM SODIUM
     Dosage: DOSE RE-INTRODUCED
     Route: 041
     Dates: end: 20170729
  9. ESOMEPRAZOLE SODIUM. [Suspect]
     Active Substance: ESOMEPRAZOLE SODIUM
     Indication: PROPHYLAXIS
     Route: 041
     Dates: start: 20170722
  10. SODIUM CHLORIDE. [Suspect]
     Active Substance: SODIUM CHLORIDE
     Dosage: SOLVENT FOR PIPERACILLIN SODIUM AND TAZOBACTAM SODIUM (DOSE RE-INTRODUCED)
     Route: 041
     Dates: end: 20170729
  11. 0.9% SODIUM CHLORIDE INJECTION [Suspect]
     Active Substance: SODIUM CHLORIDE
     Dosage: DILUENT FOR ESOMEPRAZOLE SODIUM
     Route: 041
     Dates: start: 20170722
  12. DIPEPTIVEN L-ALANYL-L-GLUTAMINE [Suspect]
     Active Substance: ALANYL GLUTAMINE
     Indication: SUPPLEMENTATION THERAPY
     Route: 041
     Dates: start: 20170722
  13. SODIUM CHLORIDE. [Suspect]
     Active Substance: SODIUM CHLORIDE
     Dosage: SOLVENT FOR DIPEPTIVEN L-ALANYL-L-GLUTAMINE (DOSE RE-INTRODUCED)
     Route: 041
     Dates: end: 20170729
  14. 0.9% SODIUM CHLORIDE INJECTION [Suspect]
     Active Substance: SODIUM CHLORIDE
     Indication: MEDICATION DILUTION
     Dosage: DILUENT FOR BROMHEXINE HYDROCHLORIDE
     Route: 041
     Dates: start: 20170722
  15. PIPERACILLIN AND TAZOBACTAM [Suspect]
     Active Substance: PIPERACILLIN SODIUM\TAZOBACTAM SODIUM
     Indication: LUNG INFECTION
     Route: 041
     Dates: start: 20170722
  16. BROMHEXINE HYDROCHLORIDE [Suspect]
     Active Substance: BROMHEXINE HYDROCHLORIDE
     Indication: PRODUCTIVE COUGH
     Route: 041
     Dates: start: 20170722
  17. BROMHEXINE HYDROCHLORIDE [Suspect]
     Active Substance: BROMHEXINE HYDROCHLORIDE
     Indication: SPUTUM ABNORMAL
     Dosage: DOSE RE-INTRODUCED
     Route: 041
     Dates: end: 20170729
  18. SODIUM CHLORIDE. [Suspect]
     Active Substance: SODIUM CHLORIDE
     Indication: MEDICATION DILUTION
     Dosage: SOLVENT FOR PIPERACILLIN SODIUM AND TAZOBACTAM SODIUM
     Route: 041
     Dates: start: 20170722
  19. SODIUM CHLORIDE. [Suspect]
     Active Substance: SODIUM CHLORIDE
     Dosage: SOLVENT FOR DIPEPTIVEN L-ALANYL-L-GLUTAMINE
     Route: 041
     Dates: start: 20170722
  20. EDARAVONE [Suspect]
     Active Substance: EDARAVONE
     Indication: PRODUCT USED FOR UNKNOWN INDICATION
     Route: 041
     Dates: start: 20170722, end: 20170729
  21. DIPEPTIVEN L-ALANYL-L-GLUTAMINE [Suspect]
     Active Substance: ALANYL GLUTAMINE
     Dosage: DOSE RE-INTRODUCED
     Route: 041
     Dates: end: 20170729
  22. FAT-SOLUBLE VITAMIN FOR INJECTION (II) [Suspect]
     Active Substance: VITAMINS
     Dosage: 1 BOTTLE, DOSE RE-INTRODUCED
     Route: 041
     Dates: end: 20170729

REACTIONS (4)
  - Hepatic function abnormal [Unknown]
  - Alanine aminotransferase increased [None]
  - Aspartate aminotransferase increased [None]
  - Gamma-glutamyltransferase increased [None]

NARRATIVE: CASE EVENT DATE: 20170728
